FAERS Safety Report 9326076 (Version 1)
Quarter: 2013Q2

REPORT INFORMATION
  Report Type: Spontaneous
  Country: US (occurrence: None)
  Receive Date: 20130603
  Receipt Date: 20130603
  Transmission Date: 20140414
  Serious: Yes (Life-Threatening, Hospitalization)
  Sender: FDA-Public Use
  Company Number: None

PATIENT
  Age: 82 Year
  Sex: Male
  Weight: 101.5 kg

DRUGS (1)
  1. XARELTO [Suspect]

REACTIONS (3)
  - Melaena [None]
  - Dyspnoea [None]
  - Dizziness [None]
